FAERS Safety Report 5247481-1 (Version None)
Quarter: 2007Q1

REPORT INFORMATION
  Report Type: 
  Country: None (occurrence: None)
  Receive Date: 20070227
  Receipt Date: 20070213
  Transmission Date: 20070707
  Serious: Yes (Hospitalization)
  Sender: FDA-Public Use
  Company Number: US-AMGEN-STX211202

PATIENT
  Sex: Female

DRUGS (1)
  1. ENBREL [Suspect]
     Indication: JUVENILE ARTHRITIS
     Route: 058
     Dates: start: 20060123

REACTIONS (8)
  - ARTHRALGIA [None]
  - BONE FORMATION INCREASED [None]
  - BURSITIS [None]
  - CONDITION AGGRAVATED [None]
  - FALL [None]
  - JUVENILE ARTHRITIS [None]
  - MIGRAINE [None]
  - ROTATOR CUFF SYNDROME [None]
